FAERS Safety Report 17442364 (Version 3)
Quarter: 2024Q1

REPORT INFORMATION
  Report Type: Spontaneous
  Country: GB (occurrence: GB)
  Receive Date: 20200220
  Receipt Date: 20240130
  Transmission Date: 20240410
  Serious: Yes (Other)
  Sender: FDA-Public Use
  Company Number: None

PATIENT
  Age: 6 Year
  Sex: Female
  Weight: 23 kg

DRUGS (1)
  1. DABRAFENIB [Suspect]
     Active Substance: DABRAFENIB
     Indication: Glioneuronal tumour
     Dosage: 50 MG, BID
     Route: 048

REACTIONS (2)
  - Lower respiratory tract infection [Recovered/Resolved]
  - Lower respiratory tract infection [Recovered/Resolved]

NARRATIVE: CASE EVENT DATE: 20191227
